FAERS Safety Report 13230899 (Version 1)
Quarter: 2017Q1

REPORT INFORMATION
  Report Type: Spontaneous
  Country: US (occurrence: US)
  Receive Date: 20170214
  Receipt Date: 20170214
  Transmission Date: 20170428
  Serious: No
  Sender: FDA-Public Use
  Company Number: US-BAYER-2017-029138

PATIENT
  Sex: Female

DRUGS (1)
  1. ALEVE [Suspect]
     Active Substance: NAPROXEN SODIUM
     Indication: PAIN
     Dosage: 1 DF, UNK
     Route: 065
     Dates: end: 20170213

REACTIONS (5)
  - Physical product label issue [None]
  - Product label confusion [None]
  - Product use issue [Unknown]
  - Drug ineffective [Unknown]
  - Patient dissatisfaction with treatment [None]

NARRATIVE: CASE EVENT DATE: 20170213
